FAERS Safety Report 10028364 (Version 2)
Quarter: 2014Q2

REPORT INFORMATION
  Report Type: Spontaneous
  Country: US (occurrence: US)
  Receive Date: 20140321
  Receipt Date: 20140408
  Transmission Date: 20141212
  Serious: No
  Sender: FDA-Public Use
  Company Number: US-VERTEX PHARMACEUTICALS INC-2014-001223

PATIENT
  Age: 18 Year
  Sex: Female
  Weight: 49 kg

DRUGS (12)
  1. KALYDECO [Suspect]
     Indication: CYSTIC FIBROSIS
     Dosage: 150 MG, BID
     Dates: start: 20131105
  2. AQUADEK/OTHER THERAPEUTIC PRODUCTS [Concomitant]
     Indication: PANCREATIC INSUFFICIENCY
     Dosage: 2 DF, QD
  3. VITAMIN D3 [Concomitant]
     Indication: VITAMIN D DEFICIENCY
     Dosage: 50000 IU, QW
  4. ALBUTEROL [Concomitant]
     Indication: CYSTIC FIBROSIS
     Dosage: 2 PUFFS, BID
  5. ADVAIR [Concomitant]
     Indication: ASTHMA
     Dosage: 250 MG PUFF, BID
  6. PULMOZYME [Concomitant]
     Indication: CYSTIC FIBROSIS
     Dosage: 2.5 MG, QD
  7. ZENPEP [Concomitant]
     Indication: PANCREATIC INSUFFICIENCY
     Dosage: 4 WITH MEALS AND 3 WITH SNACKS
  8. TOBI [Concomitant]
     Indication: PNEUMONIA PSEUDOMONAL
     Dosage: 300 MG, BID FOR 28 DAYS EVERY OTHER MONTH
  9. CAYSTON [Concomitant]
     Indication: PNEUMONIA PSEUDOMONAL
     Dosage: 75 MG, TID FOR 28 DAYS EVERY OTHER MONTH
  10. ZITHROMAX [Concomitant]
     Indication: PNEUMONIA PSEUDOMONAL
     Dosage: 500 MG, ON MWF
  11. NASONEX [Concomitant]
  12. AZITHROMAX [Concomitant]

REACTIONS (2)
  - Rhinovirus infection [Unknown]
  - Haemoptysis [Not Recovered/Not Resolved]
